FAERS Safety Report 9762791 (Version 1)
Quarter: 2013Q4

REPORT INFORMATION
  Report Type: Spontaneous
  Country: DK (occurrence: IT)
  Receive Date: 20131216
  Receipt Date: 20131216
  Transmission Date: 20140711
  Serious: Yes (Hospitalization)
  Sender: FDA-Public Use
  Company Number: IT-FRI-1000052231

PATIENT
  Age: 5 Year
  Sex: Female
  Weight: 17 kg

DRUGS (1)
  1. CITALOPRAM ORAL SOLUTION [Suspect]
     Route: 048
     Dates: start: 20130204, end: 20130204

REACTIONS (3)
  - Agitation [Recovered/Resolved]
  - Drug administration error [Recovered/Resolved]
  - Off label use [Recovered/Resolved]
